FAERS Safety Report 5696288-X (Version None)
Quarter: 2008Q2

REPORT INFORMATION
  Report Type: 
  Country: None (occurrence: None)
  Receive Date: 20080407
  Receipt Date: 20080327
  Transmission Date: 20081010
  Serious: Yes (Hospitalization, Other)
  Sender: FDA-Public Use
  Company Number: US-ELI_LILLY_AND_COMPANY-US200803006411

PATIENT
  Sex: Female

DRUGS (4)
  1. FORTEO [Suspect]
     Indication: OSTEOPOROSIS
     Dosage: UNK, UNK
     Dates: start: 20070301, end: 20071001
  2. FORTEO [Suspect]
     Dates: start: 20071101
  3. DIOVAN [Concomitant]
  4. CHOLESTYRAMINE [Concomitant]

REACTIONS (6)
  - CLOSTRIDIAL INFECTION [None]
  - COLECTOMY [None]
  - GASTROINTESTINAL PERFORATION [None]
  - INTESTINAL MASS [None]
  - MALAISE [None]
  - PERITONITIS [None]
